FAERS Safety Report 8872626 (Version 1)
Quarter: 2012Q4

REPORT INFORMATION
  Report Type: 
  Country: US (occurrence: US)
  Receive Date: 20121029
  Receipt Date: 20121029
  Transmission Date: 20130627
  Serious: Yes (Death)
  Sender: FDA-Public Use
  Company Number: US-CUBIST-2012S1000848

PATIENT
  Age: 66 Year
  Sex: Female

DRUGS (5)
  1. CUBICIN [Suspect]
     Indication: ENTEROCOCCAL INFECTION
     Route: 042
     Dates: start: 20080703, end: 20080707
  2. CUBICIN [Suspect]
     Indication: ENTEROCOCCAL INFECTION
     Route: 042
     Dates: start: 20080715, end: 20080716
  3. SYNERCID [Concomitant]
     Indication: ENTEROCOCCAL INFECTION
     Dates: start: 20080707, end: 20080711
  4. LINEZOLID [Concomitant]
     Indication: ENTEROCOCCAL INFECTION
     Dates: start: 20080711, end: 20080715
  5. GENTAMICIN [Concomitant]
     Indication: ENTEROCOCCAL INFECTION
     Dates: start: 20080703, end: 20080715

REACTIONS (1)
  - Death [Fatal]
